FAERS Safety Report 20247320 (Version 3)
Quarter: 2022Q1

REPORT INFORMATION
  Report Type: Spontaneous
  Country: US (occurrence: US)
  Receive Date: 20211229
  Receipt Date: 20220121
  Transmission Date: 20220423
  Serious: Yes (Other)
  Sender: FDA-Public Use
  Company Number: US-PFIZER INC-202101690391

PATIENT
  Age: 69 Year
  Sex: Female
  Weight: 66.68 kg

DRUGS (4)
  1. ESTRING [Suspect]
     Active Substance: ESTRADIOL
     Indication: Incontinence
     Dosage: 1 RING
  2. ESTRING [Suspect]
     Active Substance: ESTRADIOL
     Indication: Inadequate lubrication
  3. ESTRING [Suspect]
     Active Substance: ESTRADIOL
     Indication: Micturition urgency
  4. LIPITOR [Concomitant]
     Active Substance: ATORVASTATIN CALCIUM
     Dosage: 10 MG, DAILY

REACTIONS (7)
  - Device issue [Unknown]
  - Device difficult to use [Unknown]
  - Vulvovaginal discomfort [Unknown]
  - Vulvovaginal pain [Unknown]
  - Nightmare [Unknown]
  - Off label use [Unknown]
  - Drug ineffective for unapproved indication [Unknown]

NARRATIVE: CASE EVENT DATE: 20211101
